FAERS Safety Report 8325265-5 (Version None)
Quarter: 2012Q2

REPORT INFORMATION
  Report Type: 
  Country: None (occurrence: None)
  Receive Date: 20120501
  Receipt Date: 20120416
  Transmission Date: 20120825
  Serious: Yes (Disabling)
  Sender: FDA-Public Use
  Company Number: VE-ROCHE-1060006

PATIENT
  Sex: Female
  Weight: 74 kg

DRUGS (3)
  1. RIBAVARIN [Concomitant]
     Indication: HEPATITIS C
     Route: 048
     Dates: start: 20120216
  2. PYRIDOSTIGMINE BROMIDE [Concomitant]
     Indication: MYASTHENIA GRAVIS
     Route: 048
     Dates: start: 20080401
  3. PEGINTERFERON ALFA-2A [Suspect]
     Indication: HEPATITIS C
     Route: 058
     Dates: start: 20120216

REACTIONS (11)
  - PYREXIA [None]
  - NAUSEA [None]
  - WEIGHT DECREASED [None]
  - ABDOMINAL PAIN [None]
  - DEPRESSION [None]
  - LEUKOPENIA [None]
  - HEADACHE [None]
  - SYNCOPE [None]
  - ANAEMIA [None]
  - DECREASED APPETITE [None]
  - MYALGIA [None]
